FAERS Safety Report 19111578 (Version 1)
Quarter: 2021Q2

REPORT INFORMATION
  Report Type: Spontaneous
  Country: US (occurrence: US)
  Receive Date: 20210408
  Receipt Date: 20210408
  Transmission Date: 20210717
  Serious: No
  Sender: FDA-Public Use
  Company Number: US-JNJFOC-20210355222

PATIENT

DRUGS (1)
  1. TYLENOL [Suspect]
     Active Substance: ACETAMINOPHEN
     Indication: PRODUCT USED FOR UNKNOWN INDICATION
     Dosage: TOOK SIX PILLS OF TYLENOL YESTERDAY IN THE MORNING THE AFTERNOON OFF AT NIGHT
     Route: 065
     Dates: start: 20210322

REACTIONS (1)
  - Drug ineffective [Unknown]
